FAERS Safety Report 6430241-3 (Version None)
Quarter: 2009Q4

REPORT INFORMATION
  Report Type: 
  Country: None (occurrence: None)
  Receive Date: 20091104
  Receipt Date: 20091104
  Transmission Date: 20100525
  Serious: Yes (Hospitalization)
  Sender: FDA-Public Use
  Company Number: None

PATIENT
  Age: 51 Year
  Sex: Female
  Weight: 70.3075 kg

DRUGS (1)
  1. ZOLOFT [Suspect]
     Indication: DEPRESSION
     Dosage: ON FILE ON FILE
     Dates: start: 20090527, end: 20090603

REACTIONS (3)
  - ABNORMAL BEHAVIOUR [None]
  - CRIME [None]
  - PARANOIA [None]
